FAERS Safety Report 5316558-4 (Version None)
Quarter: 2007Q2

REPORT INFORMATION
  Report Type: 
  Country: None (occurrence: None)
  Receive Date: 20070504
  Receipt Date: 20070422
  Transmission Date: 20071010
  Serious: Yes (Other)
  Sender: FDA-Public Use
  Company Number: GB-ELI_LILLY_AND_COMPANY-GB200704005166

PATIENT
  Age: 59 Year
  Sex: Female

DRUGS (1)
  1. XIGRIS [Suspect]
     Dates: start: 20070420, end: 20070424

REACTIONS (1)
  - THROMBOCYTOPENIA [None]
